FAERS Safety Report 10912034 (Version 1)
Quarter: 2015Q1

REPORT INFORMATION
  Report Type: Spontaneous
  Country: US (occurrence: None)
  Receive Date: 20150310
  Receipt Date: 20150310
  Transmission Date: 20150721
  Serious: No
  Sender: FDA-Public Use
  Company Number: None

PATIENT
  Age: 64 Year
  Sex: Male
  Weight: 101 kg

DRUGS (3)
  1. ELOXATIN [Suspect]
     Active Substance: OXALIPLATIN
     Dosage: COMMENTS:  PATIENT RECEIVED A TOTAL OF SIX CYCLES OF FOLFOX THERAPY AFTER HIS SURGERY.  HIS OXALIPLATIN WAS REDUCED ON CYCLES 5 AND 6 D/T NEUTROPENIA.?AGENT ADJUSTMENT:  DOSE REDUCED
     Dates: end: 20140707
  2. 5-FLUOROURACIL (5-FU) [Suspect]
     Active Substance: FLUOROURACIL
     Dosage: COMMENTS:  PATIENT RECEIVED 5FU CONTINUES INFUSION FIVE DAYS PER WEEK DURING RADIATION THERAPY  ?AGENT ADJUSTMENT: NOT APPLICABLE
     Dates: end: 20141220
  3. LEUCOVORIN CALCIUM. [Suspect]
     Active Substance: LEUCOVORIN CALCIUM
     Dosage: COMMENTS:  HAD TO USE FUSILEV.  PATIENT RECEIVED SIX CYCLES OF FOLFOX THERAPY AFTER SURGERY.  ?AGENT ADJUSTMENT: NA??
     Dates: end: 20140707

REACTIONS (5)
  - Anal fissure [None]
  - Depression [None]
  - Defaecation urgency [None]
  - Frequent bowel movements [None]
  - Diarrhoea [None]

NARRATIVE: CASE EVENT DATE: 20140808
